FAERS Safety Report 10417254 (Version 3)
Quarter: 2014Q4

REPORT INFORMATION
  Report Type: Report from Study
  Country: US (occurrence: US)
  Receive Date: 20140828
  Receipt Date: 20141023
  Transmission Date: 20150528
  Serious: Yes (Other)
  Sender: FDA-Public Use
  Company Number: US-EXELIXIS-CABO-14004126

PATIENT
  Age: 83 Year
  Sex: Female

DRUGS (6)
  1. ARMOUR THYROID [Concomitant]
     Active Substance: THYROID, PORCINE\THYROID, UNSPECIFIED
  2. VITAMIN A [Concomitant]
     Active Substance: VITAMIN A
  3. CALCIUM [Concomitant]
     Active Substance: CALCIUM
  4. VITAMIN C [Concomitant]
     Active Substance: ASCORBIC ACID
  5. CABOZANTINIB [Suspect]
     Active Substance: CABOZANTINIB
     Dosage: 140 MG, QD
     Route: 048
     Dates: start: 20140820
  6. CABOZANTINIB [Suspect]
     Active Substance: CABOZANTINIB
     Indication: THYROID CANCER
     Dosage: 140 MG, QD
     Route: 048
     Dates: start: 20140225, end: 20140418

REACTIONS (13)
  - Memory impairment [Not Recovered/Not Resolved]
  - Dysphonia [Unknown]
  - Diarrhoea [Recovering/Resolving]
  - Hearing impaired [Not Recovered/Not Resolved]
  - Dysgeusia [Not Recovered/Not Resolved]
  - Nasopharyngitis [Unknown]
  - Diarrhoea haemorrhagic [Recovered/Resolved]
  - Visual impairment [Unknown]
  - Dizziness [Unknown]
  - Macular degeneration [Unknown]
  - Vision blurred [Not Recovered/Not Resolved]
  - Fatigue [Unknown]
  - Headache [Recovered/Resolved]

NARRATIVE: CASE EVENT DATE: 2014
